FAERS Safety Report 15787958 (Version 2)
Quarter: 2019Q1

REPORT INFORMATION
  Report Type: Report from Study
  Country: US (occurrence: US)
  Receive Date: 20190104
  Receipt Date: 20190211
  Transmission Date: 20190417
  Serious: Yes (Hospitalization)
  Sender: FDA-Public Use
  Company Number: US-BIOGEN-2018BI00677071

PATIENT
  Age: 50 Year
  Sex: Male

DRUGS (1)
  1. AVONEX [Suspect]
     Active Substance: INTERFERON BETA-1A
     Indication: MULTIPLE SCLEROSIS
     Route: 030

REACTIONS (5)
  - Visual impairment [Unknown]
  - Mobility decreased [Unknown]
  - Influenza like illness [Unknown]
  - Hypoaesthesia [Unknown]
  - Lipids abnormal [Unknown]

NARRATIVE: CASE EVENT DATE: 20110601
